FAERS Safety Report 13302853 (Version 1)
Quarter: 2017Q1

REPORT INFORMATION
  Report Type: Spontaneous
  Country: US (occurrence: US)
  Receive Date: 20170307
  Receipt Date: 20170307
  Transmission Date: 20170428
  Serious: Yes (Other)
  Sender: FDA-Public Use
  Company Number: US-NATCO PHARMA-2017NAT00024

PATIENT
  Age: 33 Year
  Sex: Female

DRUGS (3)
  1. OSELTAMIVIR PHOSPHATE. [Suspect]
     Active Substance: OSELTAMIVIR PHOSPHATE
     Indication: INFLUENZA
     Dosage: 75 MG, 2X/DAY
     Route: 048
     Dates: start: 20170217, end: 201702
  2. IBUPROFEN. [Concomitant]
     Active Substance: IBUPROFEN
     Dosage: 300 MG, UNK
  3. MUCINEX DM [Concomitant]
     Active Substance: DEXTROMETHORPHAN HYDROBROMIDE\GUAIFENESIN

REACTIONS (8)
  - Mastication disorder [Recovered/Resolved]
  - Abscess oral [Recovered/Resolved]
  - Speech disorder [Recovered/Resolved]
  - Oropharyngeal pain [Recovered/Resolved]
  - Dysphagia [Recovered/Resolved]
  - Abdominal pain upper [Recovered/Resolved]
  - Pain [Recovered/Resolved]
  - Drug ineffective [Not Recovered/Not Resolved]

NARRATIVE: CASE EVENT DATE: 20170217
